FAERS Safety Report 11814778 (Version 1)
Quarter: 2015Q4

REPORT INFORMATION
  Report Type: Spontaneous
  Country: US (occurrence: US)
  Receive Date: 20151209
  Receipt Date: 20151209
  Transmission Date: 20160305
  Serious: No
  Sender: FDA-Public Use
  Company Number: US-BAYER-2015-483169

PATIENT
  Sex: Female

DRUGS (1)
  1. MIRENA [Suspect]
     Active Substance: LEVONORGESTREL
     Indication: ENDOMETRIOSIS
     Dosage: 20 MCG/24HR, CONT
     Route: 015

REACTIONS (4)
  - Procedural headache [Recovered/Resolved]
  - Abdominal pain lower [Not Recovered/Not Resolved]
  - Off label use [None]
  - Procedural pain [Recovered/Resolved]

NARRATIVE: CASE EVENT DATE: 2015
